FAERS Safety Report 9911848 (Version 1)
Quarter: 2014Q1

REPORT INFORMATION
  Report Type: Spontaneous
  Country: US (occurrence: US)
  Receive Date: 20140219
  Receipt Date: 20140219
  Transmission Date: 20141002
  Serious: No
  Sender: FDA-Public Use
  Company Number: US-MYLANLABS-2013S1008740

PATIENT
  Age: 59 Year
  Sex: Female

DRUGS (23)
  1. XANAX [Suspect]
     Dosage: UNK
  2. ATENOLOL [Suspect]
     Dosage: UNK
  3. DEXTROMETHORPHAN HBR [Suspect]
     Dosage: UNK
  4. EPINEPHRINE [Suspect]
     Dosage: UNK
  5. PENICILLIN NOS [Suspect]
     Dosage: UNK
  6. ATIVAN [Suspect]
     Dosage: UNK
  7. NIASPAN [Suspect]
     Dosage: UNK
  8. PAXIL [Suspect]
     Dosage: UNK
  9. PLACIDYL [Suspect]
     Dosage: UNK
  10. PROZAC [Suspect]
     Dosage: UNK
  11. SYNTHROID [Suspect]
     Dosage: UNK
  12. VENTOLIN [Suspect]
     Dosage: UNK
  13. WELLBUTRIN [Suspect]
     Dosage: UNK
  14. ZETIA [Suspect]
     Dosage: UNK
  15. ZOCOR [Suspect]
     Dosage: UNK
  16. ASPIRIN [Suspect]
     Dosage: UNK
  17. PERCOCET [Suspect]
     Dosage: UNK
  18. NIACIN [Suspect]
     Dosage: UNK
  19. AVELOX [Suspect]
     Dosage: UNK
  20. CELEXA [Suspect]
     Dosage: UNK
  21. CRESTOR [Suspect]
     Dosage: UNK
  22. HALDOL [Suspect]
     Dosage: UNK
  23. LOVAZA [Suspect]
     Dosage: UNK

REACTIONS (1)
  - Drug hypersensitivity [Unknown]
